FAERS Safety Report 26155814 (Version 1)
Quarter: 2025Q4

REPORT INFORMATION
  Report Type: Spontaneous
  Country: CN (occurrence: CN)
  Receive Date: 20251215
  Receipt Date: 20251215
  Transmission Date: 20260118
  Serious: Yes (Other)
  Sender: ALKEM
  Company Number: CN-ALKEM LABORATORIES LIMITED-CN-ALKEM-2024-24945

PATIENT
  Age: 57 Year
  Sex: Female

DRUGS (6)
  1. TACROLIMUS [Suspect]
     Active Substance: TACROLIMUS
     Indication: Myasthenia gravis
     Dosage: 2 MILLIGRAM, QD (PER DAY)
     Route: 048
  2. TACROLIMUS [Suspect]
     Active Substance: TACROLIMUS
     Dosage: 1 MILLIGRAM, QD (PER DAY)
     Route: 065
  3. TACROLIMUS [Suspect]
     Active Substance: TACROLIMUS
     Dosage: UNK (DOSE INCREASED)
     Route: 065
  4. PREDNISONE [Concomitant]
     Active Substance: PREDNISONE
     Indication: Myasthenia gravis
     Dosage: 40 MILLIGRAM, QD (PER DAY)
     Route: 048
  5. PREDNISONE [Concomitant]
     Active Substance: PREDNISONE
     Dosage: 2.5 MILLIGRAM, QD (PER DAY, MINIMUM MAINTENANCE DOSE)
     Route: 065
  6. PYRIDOSTIGMINE [Concomitant]
     Active Substance: PYRIDOSTIGMINE
     Indication: Myasthenia gravis
     Dosage: 60 MILLIGRAM, TID
     Route: 065

REACTIONS (1)
  - Myasthenia gravis [Recovered/Resolved]
